FAERS Safety Report 14425776 (Version 2)
Quarter: 2018Q1

REPORT INFORMATION
  Report Type: Spontaneous
  Country: GB (occurrence: GB)
  Receive Date: 20180123
  Receipt Date: 20180207
  Transmission Date: 20180509
  Serious: Yes (Other)
  Sender: FDA-Public Use
  Company Number: PHHY2017GB199293

PATIENT
  Age: 67 Year
  Sex: Male
  Weight: 69.4 kg

DRUGS (12)
  1. BORTEZOMIB [Suspect]
     Active Substance: BORTEZOMIB
     Indication: PLASMA CELL MYELOMA
     Dosage: 2.6 MG/M2, QW
     Route: 058
     Dates: start: 20170328, end: 20170421
  2. LOPERAMIDE [Concomitant]
     Active Substance: LOPERAMIDE
     Indication: DIARRHOEA
     Dosage: 4 MG, AS NEEDED DOSEAGE FORM:UNSPECIFIED
     Route: 048
     Dates: start: 20170527
  3. LANSOPRAZOLE. [Concomitant]
     Active Substance: LANSOPRAZOLE
     Indication: SUPPORTIVE CARE
     Dosage: 30 MG, QD DOSAGE FORM: UNSPECIFIED
     Route: 048
     Dates: start: 20131108
  4. METOCLOPRAMIDE. [Concomitant]
     Active Substance: METOCLOPRAMIDE
     Indication: ANTIEMETIC SUPPORTIVE CARE
     Dosage: 20 MG, PRN (UNSPECIFIED 10-20 MG AS REQUIRED)
     Route: 048
     Dates: start: 20170328
  5. BACTRIM [Concomitant]
     Active Substance: SULFAMETHOXAZOLE\TRIMETHOPRIM
     Indication: SUPPORTIVE CARE
     Dosage: 480 MG, QD DOSAGE FORM: UNSPECIFIED
     Route: 048
     Dates: start: 20170328
  6. ACICLOVIR [Concomitant]
     Active Substance: ACYCLOVIR
     Indication: SUPPORTIVE CARE
     Dosage: 800 MG, QD (DOSAGE FORM: UNSPECIFIED)
     Route: 048
     Dates: start: 20170327
  7. BORTEZOMIB [Suspect]
     Active Substance: BORTEZOMIB
     Dosage: 1.8 MG/M2, QW
     Route: 058
     Dates: start: 20170428
  8. DEXAMETHASONE. [Suspect]
     Active Substance: DEXAMETHASONE
     Indication: PLASMA CELL MYELOMA
     Dosage: 20 MG, UNK DOSAGE FORM: UNSPECIFIED, 1, 2, 8, 9, 15, 16, 22 AND 23
     Route: 048
  9. BISOPROLOL [Concomitant]
     Active Substance: BISOPROLOL
     Indication: HYPERTENSION
     Dosage: 25 MG, QD (DOSAGE FORM: UNSPECIFIED)
     Route: 048
     Dates: start: 20110224
  10. ALLOPURINOL. [Concomitant]
     Active Substance: ALLOPURINOL
     Indication: SUPPORTIVE CARE
     Dosage: 300 MG, QD DOSAGE FORM: UNSPECIFIED
     Route: 048
     Dates: start: 20170327
  11. VENETOCLAX. [Suspect]
     Active Substance: VENETOCLAX
     Indication: PLASMA CELL MYELOMA
     Dosage: 1 UNK, QD
     Route: 048
     Dates: start: 20170328
  12. FUROSEMIDE. [Concomitant]
     Active Substance: FUROSEMIDE
     Indication: HYPERTENSION
     Dosage: DOSAGE FORM: UNSPECIFIED
     Route: 048
     Dates: start: 20170407, end: 20170407

REACTIONS (1)
  - Thrombocytopenia [Recovered/Resolved]

NARRATIVE: CASE EVENT DATE: 20170413
